FAERS Safety Report 6669630-0 (Version None)
Quarter: 2010Q2

REPORT INFORMATION
  Report Type: 
  Country: None (occurrence: None)
  Receive Date: 20100406
  Receipt Date: 20100325
  Transmission Date: 20101027
  Serious: Yes (Other)
  Sender: FDA-Public Use
  Company Number: SE-PFIZER INC-2010035286

PATIENT
  Age: 50 Year
  Sex: Female
  Weight: 64.2 kg

DRUGS (1)
  1. CHAMPIX [Suspect]
     Indication: SMOKING CESSATION THERAPY
     Dosage: UNK

REACTIONS (3)
  - DEPRESSION [None]
  - PERSONALITY CHANGE [None]
  - SUICIDAL IDEATION [None]
